FAERS Safety Report 11599855 (Version 5)
Quarter: 2022Q1

REPORT INFORMATION
  Report Type: Spontaneous
  Country: CA (occurrence: CA)
  Receive Date: 20151006
  Receipt Date: 20220318
  Transmission Date: 20220423
  Serious: Yes (Hospitalization, Other)
  Sender: FDA-Public Use
  Company Number: CA-PURDUE PHARMA-CAN-2015-0006136

PATIENT
  Age: 61 Year
  Sex: Male

DRUGS (43)
  1. DILAUDID [Suspect]
     Active Substance: HYDROMORPHONE HYDROCHLORIDE
     Indication: Product used for unknown indication
     Dosage: 12 MG, DAILY
     Route: 065
  2. DILAUDID [Suspect]
     Active Substance: HYDROMORPHONE HYDROCHLORIDE
     Dosage: 2 MG, DAILY
     Route: 065
  3. DILAUDID [Suspect]
     Active Substance: HYDROMORPHONE HYDROCHLORIDE
     Dosage: 12 MG, UNK
     Route: 065
  4. DILAUDID [Suspect]
     Active Substance: HYDROMORPHONE HYDROCHLORIDE
     Dosage: 2 MG, UNK
     Route: 065
  5. HYDROMORPHONE [Suspect]
     Active Substance: HYDROMORPHONE
     Indication: Product used for unknown indication
     Dosage: 12 MG, DAILY
     Route: 065
  6. HYDROMORPHONE [Suspect]
     Active Substance: HYDROMORPHONE
     Dosage: 12 MG, UNK
     Route: 048
  7. HYDROMORPHONE [Suspect]
     Active Substance: HYDROMORPHONE
     Dosage: 12 MG, UNK
     Route: 065
  8. AVASTIN [Suspect]
     Active Substance: BEVACIZUMAB
     Indication: Lung neoplasm malignant
     Dosage: 15 MG/KG, 1/3WEEKS
     Route: 042
  9. DIAZEPAM [Suspect]
     Active Substance: DIAZEPAM
     Indication: Product used for unknown indication
     Dosage: 30 MG, DAILY
     Route: 065
  10. DIAZEPAM [Suspect]
     Active Substance: DIAZEPAM
     Indication: Product used for unknown indication
     Dosage: 20 MG, DAILY
     Route: 065
  11. DIAZEPAM [Suspect]
     Active Substance: DIAZEPAM
     Dosage: 30 MG, UNK
     Route: 065
  12. DIAZEPAM [Suspect]
     Active Substance: DIAZEPAM
     Dosage: 20 MG, UNK
     Route: 065
  13. DIAZEPAM [Suspect]
     Active Substance: DIAZEPAM
     Dosage: 30 MG, DAILY
     Route: 065
  14. DIAZEPAM [Suspect]
     Active Substance: DIAZEPAM
     Dosage: 20 MG, DAILY
     Route: 065
  15. DIAZEPAM [Suspect]
     Active Substance: DIAZEPAM
     Dosage: 30 MG, UNK
     Route: 065
  16. DIAZEPAM [Suspect]
     Active Substance: DIAZEPAM
     Dosage: 20 MG, UNK
     Route: 065
  17. FLURAZEPAM HYDROCHLORIDE [Suspect]
     Active Substance: FLURAZEPAM HYDROCHLORIDE
     Indication: Product used for unknown indication
     Dosage: 30 MG, DAILY
     Route: 065
  18. FLURAZEPAM HYDROCHLORIDE [Suspect]
     Active Substance: FLURAZEPAM HYDROCHLORIDE
     Dosage: 2 MG, DAILY
     Route: 065
  19. FLURAZEPAM HYDROCHLORIDE [Suspect]
     Active Substance: FLURAZEPAM HYDROCHLORIDE
     Dosage: 30 MG, UNK
     Route: 065
  20. FLURAZEPAM HYDROCHLORIDE [Suspect]
     Active Substance: FLURAZEPAM HYDROCHLORIDE
     Dosage: 2 MG, UNK
     Route: 065
  21. FLURAZEPAM HYDROCHLORIDE [Suspect]
     Active Substance: FLURAZEPAM HYDROCHLORIDE
     Dosage: 2 MG, DAILY
     Route: 065
  22. FLURAZEPAM HYDROCHLORIDE [Suspect]
     Active Substance: FLURAZEPAM HYDROCHLORIDE
     Dosage: 30 MG, UNK
     Route: 065
  23. FLURAZEPAM HYDROCHLORIDE [Suspect]
     Active Substance: FLURAZEPAM HYDROCHLORIDE
     Dosage: 2 MG, UNK
     Route: 065
  24. GLYBURIDE [Suspect]
     Active Substance: GLYBURIDE
     Indication: Product used for unknown indication
     Dosage: 15 MG, DAILY
     Route: 065
  25. GLYBURIDE [Suspect]
     Active Substance: GLYBURIDE
     Indication: Product used for unknown indication
     Dosage: 15 MG, UNK
     Route: 048
  26. GLYBURIDE [Suspect]
     Active Substance: GLYBURIDE
     Dosage: 15 MG, UNK
     Route: 065
  27. GLYBURIDE [Suspect]
     Active Substance: GLYBURIDE
     Dosage: 15 MG, DAILY
     Route: 065
  28. GLYBURIDE [Suspect]
     Active Substance: GLYBURIDE
     Dosage: 15 MG, UNK
     Route: 048
  29. GLYBURIDE [Suspect]
     Active Substance: GLYBURIDE
     Dosage: 15 MG, UNK
     Route: 065
  30. LIPITOR [Suspect]
     Active Substance: ATORVASTATIN CALCIUM
     Indication: Product used for unknown indication
     Dosage: 40 MG, DAILY
     Route: 065
  31. LIPITOR [Suspect]
     Active Substance: ATORVASTATIN CALCIUM
     Dosage: 40 MG, UNK
     Route: 065
  32. MEDROXYPROGESTERONE ACETATE [Suspect]
     Active Substance: MEDROXYPROGESTERONE ACETATE
     Indication: Product used for unknown indication
     Dosage: 100 MG, DAILY
     Route: 065
  33. MEDROXYPROGESTERONE ACETATE [Suspect]
     Active Substance: MEDROXYPROGESTERONE ACETATE
     Dosage: UNK
     Route: 065
  34. BEVACIZUMAB [Suspect]
     Active Substance: BEVACIZUMAB
     Indication: Lung neoplasm malignant
     Dosage: 15 MG/KG, UNK
     Route: 042
  35. BEVACIZUMAB [Suspect]
     Active Substance: BEVACIZUMAB
     Dosage: 15 UNK,1/3WEEK
     Route: 042
  36. MEDROXYPROGESTERONE ACETATE [Concomitant]
     Active Substance: MEDROXYPROGESTERONE ACETATE
     Indication: Product used for unknown indication
     Dosage: 100 MG, UNK
     Route: 065
  37. MEDROXYPROGESTERONE ACETATE [Concomitant]
     Active Substance: MEDROXYPROGESTERONE ACETATE
     Dosage: UNK
     Route: 065
  38. BISOPROLOL FUMARATE [Suspect]
     Active Substance: BISOPROLOL FUMARATE
     Indication: Product used for unknown indication
     Dosage: 5 MG, DAILY
     Route: 065
  39. BISOPROLOL FUMARATE [Suspect]
     Active Substance: BISOPROLOL FUMARATE
     Dosage: 5 MG, UNK
     Route: 048
  40. BISOPROLOL FUMARATE [Suspect]
     Active Substance: BISOPROLOL FUMARATE
     Dosage: 5 MG, UNK
     Route: 065
  41. METFORMIN HYDROCHLORIDE [Suspect]
     Active Substance: METFORMIN HYDROCHLORIDE
     Indication: Product used for unknown indication
     Dosage: 2550 MG, DAILY
     Route: 065
  42. METFORMIN HYDROCHLORIDE [Suspect]
     Active Substance: METFORMIN HYDROCHLORIDE
     Dosage: 2550 MG, UNK
     Route: 065
  43. METFORMIN HYDROCHLORIDE [Suspect]
     Active Substance: METFORMIN HYDROCHLORIDE
     Dosage: 2550 MG, UNK
     Route: 048

REACTIONS (17)
  - Toxicity to various agents [Recovered/Resolved]
  - Coma [Recovered/Resolved]
  - Blood creatinine increased [Recovered/Resolved]
  - Coma scale abnormal [Recovered/Resolved]
  - Dehydration [Recovered/Resolved]
  - General physical health deterioration [Recovered/Resolved]
  - Haemoglobin decreased [Recovered/Resolved]
  - Mental disorder [Recovered/Resolved]
  - Mental status changes [Recovered/Resolved]
  - Treatment noncompliance [Recovered/Resolved]
  - Asthenia [Recovered/Resolved]
  - Confusional state [Recovered/Resolved]
  - Decreased appetite [Recovered/Resolved]
  - Drug ineffective [Recovered/Resolved]
  - Hypotension [Recovered/Resolved]
  - Intentional product misuse [Recovered/Resolved]
  - Pain [Recovered/Resolved]
